FAERS Safety Report 7099418-0 (Version None)
Quarter: 2010Q4

REPORT INFORMATION
  Report Type: 
  Country: None (occurrence: None)
  Receive Date: 20101112
  Receipt Date: 20080916
  Transmission Date: 20110411
  Serious: No
  Sender: FDA-Public Use
  Company Number: US-KINGPHARMUSA00001-K200801081

PATIENT
  Sex: Female
  Weight: 99.773 kg

DRUGS (12)
  1. CYTOMEL [Suspect]
     Indication: HYPOTHYROIDISM
     Dosage: 5 MCG, QD
     Route: 048
     Dates: start: 20080909, end: 20080915
  2. CYTOMEL [Suspect]
     Dosage: 2.5 MCG, QD
     Route: 048
     Dates: start: 20080917, end: 20080918
  3. SYNTHROID [Concomitant]
     Indication: HYPOTHYROIDISM
  4. LAMICTAL [Concomitant]
     Indication: BIPOLAR DISORDER
  5. METOPROLOL [Concomitant]
     Indication: HYPERTENSION
  6. ASPIRIN [Concomitant]
     Dosage: 81 MG, QD
  7. LISINOPRIL [Concomitant]
     Indication: HYPERTENSION
     Dosage: UNK, QD
  8. VYTORIN [Concomitant]
     Indication: BLOOD CHOLESTEROL INCREASED
  9. EFFEXOR XR [Concomitant]
     Indication: BIPOLAR DISORDER
  10. ACIPHEX [Concomitant]
  11. HYDROCHLOROTHIAZIDE [Concomitant]
  12. CLONAZEPAM [Concomitant]
     Dosage: UNK, QHS

REACTIONS (2)
  - NERVOUS SYSTEM DISORDER [None]
  - TREMOR [None]
